FAERS Safety Report 16827363 (Version 2)
Quarter: 2020Q2

REPORT INFORMATION
  Report Type: Report from Study
  Country: BG (occurrence: BG)
  Receive Date: 20190919
  Receipt Date: 20200421
  Transmission Date: 20200713
  Serious: Yes (Hospitalization)
  Sender: FDA-Public Use
  Company Number: BG-ASTRAZENECA-2019SF18604

PATIENT
  Age: 69 Year
  Sex: Female

DRUGS (6)
  1. NASONEX [Concomitant]
     Active Substance: MOMETASONE FUROATE
  2. BLOKBIS [Concomitant]
  3. PRESTARIUM [Concomitant]
     Active Substance: PERINDOPRIL
  4. ATORIS [Concomitant]
     Active Substance: ATORVASTATIN CALCIUM
  5. ASPIRIN. [Concomitant]
     Active Substance: ASPIRIN
  6. FASENRA [Suspect]
     Active Substance: BENRALIZUMAB
     Indication: ASTHMA
     Route: 058
     Dates: start: 20190311, end: 2019

REACTIONS (2)
  - Asthma [Unknown]
  - Drug ineffective [Unknown]
